FAERS Safety Report 5026786-3 (Version None)
Quarter: 2006Q2

REPORT INFORMATION
  Report Type: 
  Country: None (occurrence: None)
  Receive Date: 20060615
  Receipt Date: 20060612
  Transmission Date: 20061013
  Serious: Yes (Death)
  Sender: FDA-Public Use
  Company Number: 2006AC01089

PATIENT
  Age: 43 Year
  Sex: Male

DRUGS (8)
  1. SEROQUEL [Suspect]
     Route: 048
  2. DIAZEPAM [Suspect]
  3. NORDIAZEPAM [Suspect]
  4. BUPROPION HCL [Suspect]
  5. PAROXETINE HCL [Suspect]
  6. ZOLPIDEM TARTRATE [Suspect]
  7. VERAPAMIL [Suspect]
  8. ETHANOL [Suspect]

REACTIONS (7)
  - CARDIOMEGALY [None]
  - COMPLETED SUICIDE [None]
  - DRUG TOXICITY [None]
  - HEPATIC STEATOSIS [None]
  - LOSS OF CONSCIOUSNESS [None]
  - OVERDOSE [None]
  - PULMONARY OEDEMA [None]
